FAERS Safety Report 16147993 (Version 2)
Quarter: 2020Q2

REPORT INFORMATION
  Report Type: Spontaneous
  Country: US (occurrence: US)
  Receive Date: 20190402
  Receipt Date: 20200408
  Transmission Date: 20200713
  Serious: Yes (Other)
  Sender: FDA-Public Use
  Company Number: US-ALLERGAN-1906427US

PATIENT
  Age: 28 Year
  Sex: Female

DRUGS (2)
  1. ESTRACE [Concomitant]
     Active Substance: ESTRADIOL
     Indication: VULVOVAGINAL DRYNESS
     Dosage: UNK
     Route: 067
  2. LILETTA [Suspect]
     Active Substance: LEVONORGESTREL
     Indication: CONTRACEPTION
     Dosage: 52 MG, SINGLE
     Route: 015
     Dates: start: 20190205, end: 20190211

REACTIONS (1)
  - Uterine perforation [Recovered/Resolved]

NARRATIVE: CASE EVENT DATE: 20190205
